FAERS Safety Report 24990332 (Version 1)
Quarter: 2025Q1

REPORT INFORMATION
  Report Type: Spontaneous
  Country: US (occurrence: None)
  Receive Date: 20250219
  Receipt Date: 20250219
  Transmission Date: 20250409
  Serious: Yes (Disabling, Other)
  Sender: FDA-CTU
  Company Number: None

PATIENT
  Age: 31 Year
  Sex: Female
  Weight: 60.75 kg

DRUGS (6)
  1. QELBREE [Suspect]
     Active Substance: VILOXAZINE HYDROCHLORIDE
     Indication: Attention deficit hyperactivity disorder
     Dosage: OTHER QUANTITY : 30 CAPSULE(S);?FREQUENCY : DAILY;?
     Route: 048
     Dates: start: 20241113, end: 20250217
  2. REMERON [Concomitant]
     Active Substance: MIRTAZAPINE
  3. DESYREL [Concomitant]
     Active Substance: TRAZODONE HYDROCHLORIDE
  4. MIRENA [Concomitant]
     Active Substance: LEVONORGESTREL
  5. Primal Harvest multivitamin [Concomitant]
  6. Aller-tec (cetirizine hydrochloride) daily [Concomitant]

REACTIONS (4)
  - Therapy interrupted [None]
  - Migraine with aura [None]
  - Withdrawal syndrome [None]
  - Headache [None]

NARRATIVE: CASE EVENT DATE: 20250217
